FAERS Safety Report 11899514 (Version 2)
Quarter: 2016Q1

REPORT INFORMATION
  Report Type: Spontaneous
  Country: US (occurrence: US)
  Receive Date: 20160108
  Receipt Date: 20160127
  Transmission Date: 20160526
  Serious: Yes (Other)
  Sender: FDA-Public Use
  Company Number: US-AKORN PHARMACEUTICALS-2015AKN00731

PATIENT
  Age: 13 Year
  Sex: Male

DRUGS (1)
  1. MYORISAN [Suspect]
     Active Substance: ISOTRETINOIN
     Dosage: 40 MG, 2X/DAY
     Route: 048
     Dates: start: 20150716, end: 20151221

REACTIONS (7)
  - High density lipoprotein decreased [Unknown]
  - Laboratory test abnormal [Unknown]
  - LDL/HDL ratio increased [Unknown]
  - Anger [Recovered/Resolved]
  - Self-injurious ideation [Recovered/Resolved]
  - Total cholesterol/HDL ratio decreased [Recovered/Resolved]
  - Low density lipoprotein increased [Unknown]

NARRATIVE: CASE EVENT DATE: 20150717
